FAERS Safety Report 6575815-4 (Version None)
Quarter: 2010Q1

REPORT INFORMATION
  Report Type: 
  Country: None (occurrence: None)
  Receive Date: 20100208
  Receipt Date: 20100208
  Transmission Date: 20100710
  Serious: Yes (Congenital Anomaly)
  Sender: FDA-Public Use
  Company Number: None

PATIENT
  Age: 1 Day
  Sex: Female
  Weight: 3.6288 kg

DRUGS (3)
  1. CLOMID [Suspect]
     Indication: INFERTILITY
     Dosage: 100MG DAILY 2 TABLETS - DAILY PO
     Route: 048
     Dates: start: 20090301, end: 20090305
  2. METFORMIN HCL [Suspect]
     Indication: POLYCYSTIC OVARIES
     Dosage: 500MG 3 TIMES DAILY PO
     Route: 048
     Dates: start: 20090110, end: 20090415
  3. PRENATAL MULTIVITAMIN [Concomitant]

REACTIONS (2)
  - CHOANAL ATRESIA [None]
  - MATERNAL DRUGS AFFECTING FOETUS [None]
